FAERS Safety Report 10091659 (Version 3)
Quarter: 2015Q3

REPORT INFORMATION
  Report Type: Spontaneous
  Country: US (occurrence: US)
  Receive Date: 20140421
  Receipt Date: 20150813
  Transmission Date: 20151125
  Serious: No
  Sender: FDA-Public Use
  Company Number: US-GILEAD-2012-0066403

PATIENT
  Age: 73 Year
  Sex: Female

DRUGS (2)
  1. LETAIRIS [Suspect]
     Active Substance: AMBRISENTAN
     Indication: PULMONARY HYPERTENSION
  2. LETAIRIS [Suspect]
     Active Substance: AMBRISENTAN
     Indication: IDIOPATHIC PULMONARY FIBROSIS
     Dosage: 5 MG, QD
     Route: 048
     Dates: start: 20121126

REACTIONS (5)
  - Sinusitis [Unknown]
  - Fluid retention [Unknown]
  - Oedema [Unknown]
  - Dizziness [Unknown]
  - Oedema peripheral [Unknown]
